FAERS Safety Report 14894756 (Version 15)
Quarter: 2020Q1

REPORT INFORMATION
  Report Type: Report from Study
  Country: None (occurrence: NL)
  Receive Date: 20180515
  Receipt Date: 20200127
  Transmission Date: 20200409
  Serious: Yes (Other)
  Sender: FDA-Public Use
  Company Number: NL-ABBVIE-17K-114-2201545-00

PATIENT
  Age: 71 Year
  Sex: Male
  Weight: 100 kg

DRUGS (10)
  1. NEUPRO [Concomitant]
     Active Substance: ROTIGOTINE
     Indication: PRODUCT USED FOR UNKNOWN INDICATION
  2. DUODOPA [Suspect]
     Active Substance: CARBIDOPA\LEVODOPA
     Dosage: MD: 7.5, CD: 5.0, ED: 3.0; 16 HOUR ADMINISTRATION
     Route: 050
     Dates: start: 2019, end: 2019
  3. FLUCLOXACILLINE [Concomitant]
     Active Substance: FLUCLOXACILLIN
     Indication: PRODUCT USED FOR UNKNOWN INDICATION
  4. DUODOPA [Suspect]
     Active Substance: CARBIDOPA\LEVODOPA
     Dosage: MD: 8.0, CD: 5.0, ED: 3.0; 16 HOUR ADMINISTRATION
     Route: 050
     Dates: end: 2019
  5. BEPANTHEN [Concomitant]
     Indication: STOMA SITE REACTION
  6. DUODOPA [Suspect]
     Active Substance: CARBIDOPA\LEVODOPA
     Indication: PARKINSON^S DISEASE
     Dosage: MD 8.5, CD 4.8, ED 3
     Route: 050
     Dates: start: 20171204
  7. DUODOPA [Suspect]
     Active Substance: CARBIDOPA\LEVODOPA
     Dosage: MD: 8.5, CD: 5.0, ED: 3.0, 16 HOUR ADMINISTRATION
     Route: 050
  8. DUODOPA [Suspect]
     Active Substance: CARBIDOPA\LEVODOPA
     Dosage: MD: 7.0, CD: 5.0, ED: 3.0; 16 HOUR ADMINISTRATION
     Route: 050
     Dates: start: 2019
  9. MADOPAR HBS [Concomitant]
     Active Substance: BENSERAZIDE HYDROCHLORIDE\LEVODOPA
     Indication: PARKINSON^S DISEASE
     Dosage: DURING NIGHT
     Route: 065
  10. MADOPAR [Concomitant]
     Active Substance: BENSERAZIDE HYDROCHLORIDE\LEVODOPA
     Indication: PRODUCT USED FOR UNKNOWN INDICATION
     Dosage: EVERY NIGHT

REACTIONS (35)
  - Loss of consciousness [Not Recovered/Not Resolved]
  - Impaired healing [Recovering/Resolving]
  - Muscle rigidity [Not Recovered/Not Resolved]
  - Stoma site erythema [Recovered/Resolved]
  - Bradykinesia [Not Recovered/Not Resolved]
  - Stoma site discharge [Recovered/Resolved]
  - Discomfort [Not Recovered/Not Resolved]
  - Poor quality sleep [Recovered/Resolved]
  - Dystonia [Not Recovered/Not Resolved]
  - Sleep disorder [Recovered/Resolved]
  - Stoma site discharge [Recovered/Resolved]
  - Listless [Not Recovered/Not Resolved]
  - Motor dysfunction [Not Recovered/Not Resolved]
  - On and off phenomenon [Recovered/Resolved]
  - Dizziness [Not Recovered/Not Resolved]
  - Drug ineffective [Recovered/Resolved]
  - Dyskinesia [Not Recovered/Not Resolved]
  - Fatigue [Not Recovered/Not Resolved]
  - Hyperkinesia [Not Recovered/Not Resolved]
  - Stoma site inflammation [Recovered/Resolved]
  - Dyskinesia [Recovered/Resolved]
  - Hallucination [Not Recovered/Not Resolved]
  - Gait disturbance [Not Recovered/Not Resolved]
  - Incorrect dose administered [Not Recovered/Not Resolved]
  - Restlessness [Not Recovered/Not Resolved]
  - Tension [Not Recovered/Not Resolved]
  - Blood pressure fluctuation [Not Recovered/Not Resolved]
  - Insomnia [Unknown]
  - Syncope [Not Recovered/Not Resolved]
  - Stoma site erythema [Not Recovered/Not Resolved]
  - Musculoskeletal stiffness [Not Recovered/Not Resolved]
  - Nocturia [Not Recovered/Not Resolved]
  - Memory impairment [Not Recovered/Not Resolved]
  - Dystonia [Recovered/Resolved]
  - Hallucination [Recovered/Resolved]

NARRATIVE: CASE EVENT DATE: 201712
